FAERS Safety Report 22067794 (Version 1)
Quarter: 2023Q1

REPORT INFORMATION
  Report Type: Spontaneous
  Country: BE (occurrence: BE)
  Receive Date: 20230307
  Receipt Date: 20230307
  Transmission Date: 20230418
  Serious: Yes (Other)
  Sender: FDA-Public Use
  Company Number: None

PATIENT
  Age: 39 Year
  Sex: Female
  Weight: 115.3 kg

DRUGS (11)
  1. VITAMIN C [Concomitant]
     Active Substance: ASCORBIC ACID
     Indication: Product used for unknown indication
  2. SELENIUM [Concomitant]
     Active Substance: SELENIUM
     Indication: Product used for unknown indication
     Dosage: 1 TABLET/DAY HOLLAND+BARRET
  3. VITAMIN D NOS [Concomitant]
     Active Substance: VITAMIN D NOS
     Indication: Product used for unknown indication
  4. SAXENDA [Suspect]
     Active Substance: LIRAGLUTIDE
     Indication: Weight control
     Dosage: 1 DF, QD (1X/ DAG 0,6MG/ML)
     Route: 058
     Dates: start: 20220905, end: 20220927
  5. SAXENDA [Suspect]
     Active Substance: LIRAGLUTIDE
     Dosage: 1 DF, QD (1X/ DAG 0,6MG/ML)
     Route: 058
     Dates: start: 20221102, end: 20221110
  6. SAXENDA [Suspect]
     Active Substance: LIRAGLUTIDE
     Dosage: 1 DF, QD (1X/ DAG 0,6MG/ML)
     Route: 058
     Dates: start: 20221003, end: 20221027
  7. SAXENDA [Suspect]
     Active Substance: LIRAGLUTIDE
     Dosage: 1 DF, QD (1X/ DAG 0,6MG/ML)
     Route: 058
     Dates: start: 20221206, end: 20221219
  8. MAGNESIUM [Concomitant]
     Active Substance: MAGNESIUM
     Indication: Product used for unknown indication
     Dosage: MAGNIXX, 1 TABLET/DAY
  9. CHROMIUM [Concomitant]
     Active Substance: CHROMIC CHLORIDE\CHROMIUM
     Indication: Product used for unknown indication
  10. ZINC [Concomitant]
     Active Substance: ZINC
     Indication: Product used for unknown indication
     Dosage: 1 TABLET/DAY HOLLAND+BARRET
  11. CANNABIDIOL\HERBALS [Concomitant]
     Active Substance: CANNABIDIOL\HERBALS
     Indication: Product used for unknown indication
     Dosage: 15% (3 DROPS PER DAY)

REACTIONS (24)
  - Cardiac flutter [Recovering/Resolving]
  - Musculoskeletal chest pain [Not Recovered/Not Resolved]
  - Restlessness [Recovered/Resolved]
  - Back pain [Recovering/Resolving]
  - Thirst [Recovering/Resolving]
  - Agitation [Recovered/Resolved]
  - Pollakiuria [Recovering/Resolving]
  - Migraine [Recovering/Resolving]
  - Early satiety [Not Recovered/Not Resolved]
  - Myalgia [Recovering/Resolving]
  - Gastrointestinal inflammation [Recovering/Resolving]
  - Palpitations [Recovered/Resolved]
  - Fatigue [Recovered/Resolved]
  - Abdominal discomfort [Recovering/Resolving]
  - Abdominal distension [Not Recovered/Not Resolved]
  - Gastritis [Recovering/Resolving]
  - Vomiting [Recovering/Resolving]
  - Dizziness [Recovered/Resolved]
  - Malaise [Recovering/Resolving]
  - Diarrhoea [Recovering/Resolving]
  - Nausea [Recovering/Resolving]
  - Headache [Recovering/Resolving]
  - Eructation [Not Recovered/Not Resolved]
  - Abdominal pain upper [Recovering/Resolving]

NARRATIVE: CASE EVENT DATE: 20220905
